FAERS Safety Report 8777052 (Version 2)
Quarter: 2012Q4

REPORT INFORMATION
  Report Type: Report from Study
  Country: JP (occurrence: JP)
  Receive Date: 20120911
  Receipt Date: 20121005
  Transmission Date: 20130627
  Serious: Yes (Other)
  Sender: FDA-Public Use
  Company Number: JP-AMGEN-JPNCT2012056764

PATIENT
  Age: 79 Year
  Sex: Female

DRUGS (4)
  1. DENOSUMAB [Suspect]
     Indication: NEOPLASM MALIGNANT
     Dosage: UNK
     Route: 048
     Dates: start: 20120327
  2. CEFZON [Concomitant]
     Dosage: 100 mg, tid
     Dates: start: 20120313, end: 20120320
  3. FASLODEX [Concomitant]
     Indication: BREAST CANCER
     Dosage: UNK
     Dates: start: 20111206, end: 20120424
  4. FARESTON [Concomitant]
     Indication: BREAST CANCER
     Dosage: UNK
     Dates: start: 20120425

REACTIONS (1)
  - Osteomyelitis [Not Recovered/Not Resolved]
